FAERS Safety Report 11209490 (Version 2)
Quarter: 2015Q3

REPORT INFORMATION
  Report Type: Spontaneous
  Country: JP (occurrence: JP)
  Receive Date: 20150622
  Receipt Date: 20150908
  Transmission Date: 20151125
  Serious: Yes (Hospitalization, Other)
  Sender: FDA-Public Use
  Company Number: JP-ABBVIE-15P-087-1413814-00

PATIENT
  Age: 78 Year
  Sex: Male

DRUGS (1)
  1. LEUPLIN [Suspect]
     Active Substance: LEUPROLIDE ACETATE
     Indication: PROSTATE CANCER
     Dosage: 3.75MG, Q4WEEKS
     Route: 058
     Dates: start: 201503

REACTIONS (1)
  - Pituitary haemorrhage [Recovered/Resolved]

NARRATIVE: CASE EVENT DATE: 201503
